FAERS Safety Report 24033052 (Version 1)
Quarter: 2024Q3

REPORT INFORMATION
  Report Type: Spontaneous
  Country: FR (occurrence: FR)
  Receive Date: 20240701
  Receipt Date: 20240701
  Transmission Date: 20241016
  Serious: Yes (Hospitalization, Other)
  Sender: AUROBINDO
  Company Number: FR-AFSSAPS-MP2024001041

PATIENT
  Age: 82 Year
  Sex: Male
  Weight: 85 kg

DRUGS (4)
  1. METRONIDAZOLE [Suspect]
     Active Substance: METRONIDAZOLE
     Indication: Cholangitis acute
     Dosage: UNK
     Route: 042
     Dates: start: 20240529, end: 20240603
  2. LINEZOLID [Suspect]
     Active Substance: LINEZOLID
     Indication: Cholangitis acute
     Dosage: UNK
     Route: 042
     Dates: start: 20240606, end: 20240610
  3. DAPTOMYCIN [Suspect]
     Active Substance: DAPTOMYCIN
     Indication: Cholangitis acute
     Dosage: UNK
     Route: 042
     Dates: start: 20240529, end: 20240606
  4. PIPERACILLIN SODIUM\TAZOBACTAM SODIUM [Suspect]
     Active Substance: PIPERACILLIN SODIUM\TAZOBACTAM SODIUM
     Indication: Cholangitis acute
     Dosage: UNK
     Route: 042
     Dates: start: 20240526, end: 20240610

REACTIONS (1)
  - Pancytopenia [Not Recovered/Not Resolved]

NARRATIVE: CASE EVENT DATE: 20240607
